FAERS Safety Report 7771396-8 (Version None)
Quarter: 2011Q3

REPORT INFORMATION
  Report Type: 
  Country: None (occurrence: None)
  Receive Date: 20110922
  Receipt Date: 20100826
  Transmission Date: 20111222
  Serious: Yes (Other)
  Sender: FDA-Public Use
  Company Number: US-ASTRAZENECA-2007UW21662

PATIENT
  Age: 595 Month
  Sex: Male
  Weight: 100.7 kg

DRUGS (29)
  1. ALPRAZOLAM [Concomitant]
     Dates: start: 20060406
  2. LIPITOR [Concomitant]
  3. LORAZEPAM [Concomitant]
  4. NOVOLOG [Concomitant]
     Dosage: 10-13 UNITS BID
     Dates: start: 20060421
  5. HYDROCODONE BITARTRATE AND ACETAMINOPHEN [Concomitant]
     Dosage: 5/500 MG TAB, 1 PO TID
     Route: 048
     Dates: start: 19970618
  6. OMEPRAZOLE [Concomitant]
  7. SEROQUEL [Suspect]
     Route: 048
     Dates: start: 20040923
  8. CYCLOPHOSPHAMIDE [Concomitant]
  9. CARISOPRODOL [Concomitant]
  10. B-COMPLEX VIT PLUS [Concomitant]
  11. SEROQUEL [Suspect]
     Indication: ANXIETY
     Dosage: 25MG-300MG
     Route: 048
     Dates: start: 20031101, end: 20070501
  12. EFFEXOR XR [Concomitant]
     Dates: start: 20040923
  13. HYDROCODONE [Concomitant]
  14. DURAGESIC-100 [Concomitant]
  15. TRAMADOL HCL [Concomitant]
  16. APAP W/ CODEINE [Concomitant]
     Dosage: 300-30 MG TAB
     Dates: start: 19980418
  17. SEROQUEL [Suspect]
     Indication: DEPRESSION
     Dosage: 25MG-300MG
     Route: 048
     Dates: start: 20031101, end: 20070501
  18. AMBIEN [Concomitant]
  19. ALTOCOR [Concomitant]
  20. BACLOFEN [Concomitant]
  21. CELEBREX [Concomitant]
     Dates: start: 20000306
  22. PRILOSEC [Concomitant]
     Dosage: OTC QD
     Dates: start: 20060406
  23. SEROQUEL [Suspect]
     Route: 048
     Dates: start: 20040923
  24. TEMAZEPAM [Concomitant]
  25. PROMETHAZINE [Concomitant]
     Dates: start: 20001228
  26. DIPHENHYDRAMINE HCL [Concomitant]
  27. NOVOLIN 70/30 [Concomitant]
  28. PANTOPRAZOLE [Concomitant]
  29. HYDROXYZPAM [Concomitant]

REACTIONS (10)
  - COUGH [None]
  - HYPOGLYCAEMIA [None]
  - BLOOD GLUCOSE DECREASED [None]
  - TYPE 1 DIABETES MELLITUS [None]
  - PAIN [None]
  - AIR EMBOLISM [None]
  - TYPE 2 DIABETES MELLITUS [None]
  - WEIGHT DECREASED [None]
  - DISORIENTATION [None]
  - PARAESTHESIA [None]
